FAERS Safety Report 9255081 (Version 2)
Quarter: 2013Q2

REPORT INFORMATION
  Report Type: Spontaneous
  Country: SK (occurrence: None)
  Receive Date: 20130422
  Receipt Date: 20130506
  Transmission Date: 20140414
  Serious: Yes (Other)
  Sender: FDA-Public Use
  Company Number: SYM-2013-02872

PATIENT
  Age: 66 Year
  Sex: Female

DRUGS (2)
  1. MESTINON [Suspect]
     Indication: SPINAL MUSCULAR ATROPHY
     Route: 048
  2. TRALGIT [Concomitant]

REACTIONS (12)
  - Abasia [None]
  - Mobility decreased [None]
  - Abdominal pain upper [None]
  - Increased bronchial secretion [None]
  - Micturition urgency [None]
  - Myalgia [None]
  - Pain [None]
  - Spinal muscular atrophy [None]
  - Condition aggravated [None]
  - Spinal pain [None]
  - Drug ineffective [None]
  - Urinary retention [None]
